FAERS Safety Report 18606017 (Version 1)
Quarter: 2020Q4

REPORT INFORMATION
  Report Type: Spontaneous
  Country: NG (occurrence: NG)
  Receive Date: 20201211
  Receipt Date: 20201211
  Transmission Date: 20210114
  Serious: Yes (Other)
  Sender: FDA-Public Use
  Company Number: NG-HQ-000099

PATIENT
  Age: 84 Year
  Sex: Male

DRUGS (5)
  1. AVASTIN [Concomitant]
     Active Substance: BEVACIZUMAB
     Indication: ANTERIOR CHAMBER ANGLE NEOVASCULARISATION
     Route: 031
  2. ATROPINE. [Concomitant]
     Active Substance: ATROPINE
     Indication: ENTEROCOCCAL INFECTION
     Route: 065
  3. MOXIFLOXACIN. [Concomitant]
     Active Substance: MOXIFLOXACIN
     Indication: ENTEROCOCCAL INFECTION
  4. DEXAMETHASONE. [Concomitant]
     Active Substance: DEXAMETHASONE
     Indication: ENTEROCOCCAL INFECTION
     Route: 061
  5. LINEZOLID. [Suspect]
     Active Substance: LINEZOLID
     Indication: ENTEROCOCCAL INFECTION
     Dosage: IN 0.1 ML
     Route: 031

REACTIONS (2)
  - Macular detachment [Not Recovered/Not Resolved]
  - Off label use [Recovered/Resolved]
